FAERS Safety Report 10476542 (Version 3)
Quarter: 2014Q4

REPORT INFORMATION
  Report Type: Report from Study
  Country: US (occurrence: US)
  Receive Date: 20140925
  Receipt Date: 20141107
  Transmission Date: 20150528
  Serious: Yes (Death, Hospitalization)
  Sender: FDA-Public Use
  Company Number: US-BAYER-2014-093243

PATIENT
  Age: 61 Year
  Sex: Male

DRUGS (4)
  1. NEXAVAR [Suspect]
     Active Substance: SORAFENIB
     Indication: HEPATIC CANCER
     Dosage: 200 MG, BID
     Route: 048
  2. NEXAVAR [Suspect]
     Active Substance: SORAFENIB
     Indication: HEPATIC CANCER
     Dosage: 200 MG, BID
     Route: 048
     Dates: start: 201407, end: 20141026
  3. NEXAVAR [Suspect]
     Active Substance: SORAFENIB
     Indication: HEPATIC CANCER
     Dosage: 200 MG, BID
     Route: 048
     Dates: start: 20140520
  4. NEXAVAR [Suspect]
     Active Substance: SORAFENIB
     Indication: HEPATIC CANCER
     Dosage: 200 MG, BID
     Dates: start: 20140520, end: 20141026

REACTIONS (10)
  - Decreased appetite [None]
  - Fall [None]
  - Drug dose omission [None]
  - Lethargy [None]
  - Death [Fatal]
  - Decreased appetite [None]
  - Anaemia [None]
  - Nausea [None]
  - Nausea [Not Recovered/Not Resolved]
  - Asthenia [None]

NARRATIVE: CASE EVENT DATE: 201405
